FAERS Safety Report 19230201 (Version 8)
Quarter: 2021Q2

REPORT INFORMATION
  Report Type: Spontaneous
  Country: PL (occurrence: PL)
  Receive Date: 20210507
  Receipt Date: 20210611
  Transmission Date: 20210717
  Serious: Yes (Hospitalization, Other)
  Sender: FDA-Public Use
  Company Number: PL-PFIZER INC-2021462129

PATIENT
  Age: 67 Year
  Sex: Female

DRUGS (4)
  1. PANTOPRAZOLE [Suspect]
     Active Substance: PANTOPRAZOLE
     Dosage: 20 MG INTAKE AFTER A MEAL
  2. ACETYLSALICYLIC ACID [Interacting]
     Active Substance: ASPIRIN
     Dosage: 75 MG (INTAKE AFTER A MEAL)
  3. DICLOFENAC [Interacting]
     Active Substance: DICLOFENAC
     Indication: SPINAL OSTEOARTHRITIS
     Dosage: 75 MG, DAILY
  4. DICLOFENAC [Interacting]
     Active Substance: DICLOFENAC
     Indication: ANTIINFLAMMATORY THERAPY

REACTIONS (8)
  - Asthenia [Unknown]
  - Anaemia [Unknown]
  - Melaena [Unknown]
  - Ulcer [Unknown]
  - Gastric ulcer [Unknown]
  - Inappropriate schedule of product administration [Unknown]
  - Peptic ulcer [Unknown]
  - Drug interaction [Unknown]
